FAERS Safety Report 7919329-5 (Version None)
Quarter: 2011Q4

REPORT INFORMATION
  Report Type: 
  Country: None (occurrence: None)
  Receive Date: 20111115
  Receipt Date: 20111115
  Transmission Date: 20120403
  Serious: No
  Sender: FDA-Public Use
  Company Number: None

PATIENT
  Age: 66 Year
  Sex: Female

DRUGS (7)
  1. AMPYRA [Suspect]
     Indication: MULTIPLE SCLEROSIS
     Dosage: 10MG EVERY 12 HOURS ORALLY
     Route: 048
     Dates: start: 20110901, end: 20111101
  2. ATENOLOL [Concomitant]
  3. PROZAC [Concomitant]
  4. LEVOTHROID [Concomitant]
  5. DIAZEPAM [Concomitant]
  6. LOSARTAN [Concomitant]
  7. BACLOFEN [Concomitant]

REACTIONS (1)
  - NO THERAPEUTIC RESPONSE [None]
